FAERS Safety Report 8933289 (Version 1)
Quarter: 2012Q4

REPORT INFORMATION
  Report Type: 
  Country: MX (occurrence: MX)
  Receive Date: 20121129
  Receipt Date: 20121129
  Transmission Date: 20130627
  Serious: Yes (Other)
  Sender: FDA-Public Use
  Company Number: PHHY2012MX108044

PATIENT
  Sex: Female

DRUGS (1)
  1. EXFORGE [Suspect]
     Indication: HYPERTENSION
     Dosage: 1 DF, (160 mg vals, 5 mg amlo) daily
     Route: 048

REACTIONS (5)
  - Fall [Recovered/Resolved]
  - Bone fissure [Recovered/Resolved]
  - Bone pain [Unknown]
  - Ligament sprain [Recovered/Resolved]
  - Osteopenia [Not Recovered/Not Resolved]
